FAERS Safety Report 13949245 (Version 1)
Quarter: 2017Q3

REPORT INFORMATION
  Report Type: Spontaneous
  Country: US (occurrence: US)
  Receive Date: 20170908
  Receipt Date: 20170908
  Transmission Date: 20171128
  Serious: Yes (Other)
  Sender: FDA-Public Use
  Company Number: US-ROCHE-1131060

PATIENT
  Sex: Male

DRUGS (5)
  1. CYTOXAN [Concomitant]
     Active Substance: CYCLOPHOSPHAMIDE
  2. ADRIAMYCIN [Concomitant]
     Active Substance: DOXORUBICIN HYDROCHLORIDE
  3. OXYCONTIN [Concomitant]
     Active Substance: OXYCODONE HYDROCHLORIDE
  4. RITUXAN [Suspect]
     Active Substance: RITUXIMAB
     Indication: NON-HODGKIN^S LYMPHOMA
     Route: 065
     Dates: start: 20000612
  5. ZINECARD [Concomitant]
     Active Substance: DEXRAZOXANE HYDROCHLORIDE

REACTIONS (6)
  - Dyspnoea [Unknown]
  - Febrile neutropenia [Unknown]
  - Weight decreased [Unknown]
  - Back pain [Recovering/Resolving]
  - Oedema peripheral [Unknown]
  - Headache [Unknown]
